FAERS Safety Report 9873406 (Version 2)
Quarter: 2014Q1

REPORT INFORMATION
  Report Type: Spontaneous
  Country: US (occurrence: US)
  Receive Date: 20140206
  Receipt Date: 20140206
  Transmission Date: 20141002
  Serious: No
  Sender: FDA-Public Use
  Company Number: US-ACORDA-ACO_33497_2012

PATIENT
  Sex: Female

DRUGS (6)
  1. AMPYRA [Suspect]
     Indication: PRODUCT USED FOR UNKNOWN INDICATION
     Dosage: 10 MG, BID
     Dates: end: 2011
  2. AMPYRA [Suspect]
     Dosage: 10 MG, BID
     Dates: start: 201202
  3. AMPYRA [Suspect]
     Dosage: 10 MG, BID
     Dates: start: 201212
  4. OXYBUTYNIN CHLORIDE [Concomitant]
     Indication: PRODUCT USED FOR UNKNOWN INDICATION
     Dosage: 5 MG, UNK
  5. BACLOFEN [Concomitant]
     Indication: PRODUCT USED FOR UNKNOWN INDICATION
     Dosage: 20 MG, UNK
  6. AVONEX [Concomitant]
     Indication: PRODUCT USED FOR UNKNOWN INDICATION
     Dosage: UNK

REACTIONS (5)
  - Pruritus [Unknown]
  - Sensation of heaviness [Unknown]
  - Gait disturbance [Not Recovered/Not Resolved]
  - Adverse drug reaction [Unknown]
  - Constipation [Unknown]
